FAERS Safety Report 11537264 (Version 1)
Quarter: 2015Q3

REPORT INFORMATION
  Report Type: Spontaneous
  Country: CH (occurrence: CH)
  Receive Date: 20150922
  Receipt Date: 20150922
  Transmission Date: 20151125
  Serious: Yes (Other)
  Sender: FDA-Public Use
  Company Number: PHHY2015CH112558

PATIENT
  Age: 18 Year
  Sex: Female

DRUGS (7)
  1. LEPONEX [Suspect]
     Active Substance: CLOZAPINE
     Dosage: 400 MG, QD (200 MG IN THE MORNING AND 200 MG IN THE EVENING)
     Route: 048
     Dates: start: 20150812
  2. CIPRALEX [Concomitant]
     Active Substance: ESCITALOPRAM OXALATE
     Indication: DEPRESSIVE SYMPTOM
     Dosage: 10 MG, QD
     Route: 048
     Dates: start: 20150806
  3. LEPONEX [Suspect]
     Active Substance: CLOZAPINE
     Dosage: 300 MG, QD
     Route: 048
  4. LEPONEX [Suspect]
     Active Substance: CLOZAPINE
     Indication: PSYCHOTIC DISORDER
     Dosage: 200 MG, QD
     Route: 048
     Dates: start: 20150224, end: 20150330
  5. LYRICA [Concomitant]
     Active Substance: PREGABALIN
     Indication: AFFECTIVE DISORDER
     Route: 048
     Dates: start: 20150814
  6. NICOTINELL [Concomitant]
     Active Substance: NICOTINE
     Indication: PRODUCT USED FOR UNKNOWN INDICATION
     Dosage: 14 MG, QD
     Route: 003
  7. LEPONEX [Suspect]
     Active Substance: CLOZAPINE
     Dosage: 50 MG, TID
     Route: 048

REACTIONS (3)
  - Muscle spasms [Not Recovered/Not Resolved]
  - Tachycardia [Not Recovered/Not Resolved]
  - Dyskinesia [Not Recovered/Not Resolved]

NARRATIVE: CASE EVENT DATE: 201502
